FAERS Safety Report 6505316-0 (Version None)
Quarter: 2009Q4

REPORT INFORMATION
  Report Type: 
  Country: None (occurrence: None)
  Receive Date: 20091216
  Receipt Date: 20091130
  Transmission Date: 20100525
  Serious: Yes (Hospitalization)
  Sender: FDA-Public Use
  Company Number: 2009BI024413

PATIENT
  Age: 65 Year
  Sex: Male

DRUGS (9)
  1. ZEVALIN [Suspect]
     Indication: LYMPHOMA
     Dosage: 630 MBQ;1X;IV
     Route: 042
     Dates: start: 20090303, end: 20090310
  2. RITUXAN [Concomitant]
  3. LOXONIN [Concomitant]
  4. BAKTAR [Concomitant]
  5. DIFLUCAN [Concomitant]
  6. POLARAMINE [Concomitant]
  7. RITUXIMAB [Concomitant]
  8. FLUDARA [Concomitant]
  9. FLUDEOXYGLUCOSE [Concomitant]

REACTIONS (4)
  - BONE MARROW FAILURE [None]
  - FEBRILE NEUTROPENIA [None]
  - PHARYNGITIS [None]
  - SINUSITIS [None]
